FAERS Safety Report 4657417-X (Version None)
Quarter: 2005Q2

REPORT INFORMATION
  Report Type: 
  Country: None (occurrence: None)
  Receive Date: 20050510
  Receipt Date: 20050429
  Transmission Date: 20051028
  Serious: Yes (Other)
  Sender: FDA-Public Use
  Company Number: US-JNJFOC-20041202246

PATIENT
  Sex: Female
  Weight: 99.79 kg

DRUGS (9)
  1. REMICADE [Suspect]
     Indication: RHEUMATOID ARTHRITIS
     Route: 042
  2. METHOTREXATE [Concomitant]
     Indication: RHEUMATOID ARTHRITIS
  3. BEXTRA [Concomitant]
     Indication: PAIN
  4. LOTREL [Concomitant]
  5. LOTREL [Concomitant]
  6. FLONASE [Concomitant]
  7. NABUMETONE [Concomitant]
  8. POTASSIUM CHLORIDE [Concomitant]
     Indication: DIURETIC THERAPY
  9. FUROSEMIDE [Concomitant]
     Indication: DIURETIC THERAPY

REACTIONS (2)
  - OCULAR VASCULAR DISORDER [None]
  - OPTIC NERVE SHEATH HAEMORRHAGE [None]
